FAERS Safety Report 8297931-1 (Version None)
Quarter: 2012Q2

REPORT INFORMATION
  Report Type: 
  Country: None (occurrence: None)
  Receive Date: 20120419
  Receipt Date: 20120413
  Transmission Date: 20120825
  Serious: Yes (Hospitalization)
  Sender: FDA-Public Use
  Company Number: IT-SANOFI-AVENTIS-2011SA085711

PATIENT
  Age: 45 Year
  Sex: Male

DRUGS (8)
  1. LEVOTHYROXINE SODIUM [Concomitant]
     Route: 048
  2. HUMALOG [Concomitant]
     Route: 065
  3. LANTUS [Concomitant]
     Route: 065
  4. METOPROLOL TARTRATE [Concomitant]
     Route: 048
  5. PLAVIX [Suspect]
     Indication: ACUTE CORONARY SYNDROME
     Route: 048
     Dates: start: 20110609, end: 20110706
  6. ATORVASTATIN CALCIUM [Concomitant]
     Route: 048
  7. ALLOPURINOL [Suspect]
     Indication: HYPERURICAEMIA
     Route: 048
     Dates: start: 20110701, end: 20110707
  8. LANSOPRAZOLE [Concomitant]
     Route: 048

REACTIONS (1)
  - FEBRILE NEUTROPENIA [None]
